FAERS Safety Report 16117486 (Version 1)
Quarter: 2019Q1

REPORT INFORMATION
  Report Type: Spontaneous
  Country: US (occurrence: US)
  Receive Date: 20190221
  Receipt Date: 20190221
  Transmission Date: 20190418
  Serious: Yes (Disabling)
  Sender: FDA-Public Use
  Company Number: None

PATIENT
  Age: 70 Year
  Sex: Male
  Weight: 77.11 kg

DRUGS (7)
  1. ACETAZOLAMIDE TABS 250, 2 TABLETS TWICE A DAY [Suspect]
     Active Substance: ACETAZOLAMIDE
     Indication: GLAUCOMA
     Dosage: ?          QUANTITY:2 TABS;?
     Route: 048
     Dates: start: 20190122, end: 20190215
  2. BRINZOLAMIDE-BRIMONIDINE 1-0.% [Concomitant]
  3. LIPITOR [Concomitant]
     Active Substance: ATORVASTATIN CALCIUM
  4. SYNTHROID [Concomitant]
     Active Substance: LEVOTHYROXINE SODIUM
  5. LUMIGAN [Concomitant]
     Active Substance: BIMATOPROST
  6. ALLOPURINOL 300MG [Concomitant]
     Active Substance: ALLOPURINOL
  7. TRICOR 145MG [Concomitant]

REACTIONS (3)
  - Libido decreased [None]
  - Erectile dysfunction [None]
  - Weight decreased [None]

NARRATIVE: CASE EVENT DATE: 20190122
